FAERS Safety Report 13780449 (Version 1)
Quarter: 2017Q3

REPORT INFORMATION
  Report Type: Spontaneous
  Country: FR (occurrence: FR)
  Receive Date: 20170724
  Receipt Date: 20170724
  Transmission Date: 20171127
  Serious: Yes (Other)
  Sender: FDA-Public Use
  Company Number: FR-UCBSA-2017028344

PATIENT
  Age: 7 Month
  Sex: Male
  Weight: 9 kg

DRUGS (2)
  1. KEPPRA [Suspect]
     Active Substance: LEVETIRACETAM
     Indication: SEIZURE
     Dosage: 5 ML INSTEAD OF 1.5 ML FOR A TOTAL OF 4 DOSES
     Dates: start: 20170704, end: 20170706
  2. RIVOTRIL [Suspect]
     Active Substance: CLONAZEPAM
     Indication: SEIZURE
     Dosage: UNK

REACTIONS (2)
  - Hypotonia [Recovered/Resolved]
  - Accidental overdose [Unknown]

NARRATIVE: CASE EVENT DATE: 20170704
